FAERS Safety Report 8895036 (Version 1)
Quarter: 2012Q4

REPORT INFORMATION
  Report Type: 
  Country: US (occurrence: US)
  Receive Date: 20121107
  Receipt Date: 20121107
  Transmission Date: 20130627
  Serious: No
  Sender: FDA-Public Use
  Company Number: US-AMGEN-USASP2011044393

PATIENT
  Age: 18 Year
  Sex: Female
  Weight: 64.22 kg

DRUGS (1)
  1. ENBREL [Suspect]
     Indication: PSORIASIS
     Dosage: 50 mg, qwk
     Dates: start: 20101216, end: 20120215

REACTIONS (10)
  - Bowel movement irregularity [Not Recovered/Not Resolved]
  - Headache [Recovered/Resolved]
  - Therapeutic response decreased [Unknown]
  - Dysplastic naevus [Unknown]
  - Skin hypopigmentation [Unknown]
  - Epidermal naevus [Unknown]
  - Onycholysis [Unknown]
  - Onychomycosis [Unknown]
  - Herpes simplex [Unknown]
  - Psoriasis [Not Recovered/Not Resolved]
